FAERS Safety Report 11356451 (Version 2)
Quarter: 2015Q3

REPORT INFORMATION
  Report Type: Report from Study
  Country: IL (occurrence: IL)
  Receive Date: 20150807
  Receipt Date: 20150807
  Transmission Date: 20151125
  Serious: Yes (Hospitalization, Other)
  Sender: FDA-Public Use
  Company Number: IL-ABBVIE-15P-082-1419800-00

PATIENT
  Age: 70 Year
  Sex: Female

DRUGS (5)
  1. COUMADIN [Concomitant]
     Active Substance: WARFARIN SODIUM
  2. COUMADIN [Concomitant]
     Active Substance: WARFARIN SODIUM
     Indication: HEART VALVE REPLACEMENT
     Route: 048
     Dates: start: 2004
  3. EXVIERA [Suspect]
     Active Substance: DASABUVIR
     Indication: HEPATITIS C
     Route: 048
     Dates: start: 20150512
  4. RIBAVIRIN. [Suspect]
     Active Substance: RIBAVIRIN
     Indication: HEPATITIS C
     Dosage: 600 MG IN THE MORNING; 400 MG IN THE EVENING
     Route: 048
     Dates: start: 20150512
  5. VIEKIRAX [Suspect]
     Active Substance: OMBITASVIR\PARITAPREVIR\RITONAVIR
     Indication: HEPATITIS C
     Route: 048
     Dates: start: 20150512

REACTIONS (8)
  - Blood bilirubin increased [Recovered/Resolved]
  - Weight increased [Not Recovered/Not Resolved]
  - Asthenia [Recovered/Resolved]
  - Coagulopathy [Unknown]
  - Abdominal pain [Not Recovered/Not Resolved]
  - Blood bilirubin increased [Not Recovered/Not Resolved]
  - Alopecia [Recovering/Resolving]
  - Diarrhoea [Not Recovered/Not Resolved]

NARRATIVE: CASE EVENT DATE: 20150716
